FAERS Safety Report 24327108 (Version 2)
Quarter: 2024Q4

REPORT INFORMATION
  Report Type: Spontaneous
  Country: US (occurrence: US)
  Receive Date: 20240917
  Receipt Date: 20241011
  Transmission Date: 20250115
  Serious: Yes (Other)
  Sender: BAYER
  Company Number: US-BAYER-2024A130921

PATIENT
  Age: 33 Year
  Sex: Female
  Weight: 64.399 kg

DRUGS (1)
  1. MIRENA [Suspect]
     Active Substance: LEVONORGESTREL
     Indication: Contraception
     Dosage: 20?G/DAY
     Route: 015
     Dates: start: 20240911, end: 20240911

REACTIONS (2)
  - Uterine perforation [Unknown]
  - Complication of device insertion [None]

NARRATIVE: CASE EVENT DATE: 20240911
